FAERS Safety Report 8221007-2 (Version None)
Quarter: 2012Q1

REPORT INFORMATION
  Report Type: 
  Country: None (occurrence: None)
  Receive Date: 20120320
  Receipt Date: 20120314
  Transmission Date: 20120608
  Serious: Yes (Other)
  Sender: FDA-Public Use
  Company Number: FR-PFIZER INC-2012066752

PATIENT
  Age: 51 Year
  Sex: Female

DRUGS (5)
  1. EFFEXOR XR [Suspect]
     Dosage: 37.5 MG, EVERY THREE DAYS FOR 1 YEAR
  2. EFFEXOR XR [Suspect]
     Dosage: 37.5 MG, 1X/DAY, FOR 2 YEARS
     Route: 048
  3. EFFEXOR XR [Suspect]
     Dosage: 37.5 MG, 2X/DAY
     Dates: start: 20030101
  4. EFFEXOR XR [Suspect]
     Dosage: 37.5 MG X1, ALTERNATE DAY, FOR 2 YEARS
  5. EFFEXOR XR [Suspect]
     Dosage: 37.5 MG, EVERY 4 DAYS
     Dates: start: 20120115

REACTIONS (1)
  - DRUG DEPENDENCE [None]
